FAERS Safety Report 6454707-5 (Version None)
Quarter: 2009Q4

REPORT INFORMATION
  Report Type: 
  Country: None (occurrence: None)
  Receive Date: 20091124
  Receipt Date: 20091118
  Transmission Date: 20100525
  Serious: Yes (Hospitalization)
  Sender: FDA-Public Use
  Company Number: US-GILEAD-2009-0024962

PATIENT
  Sex: Female
  Weight: 74.91 kg

DRUGS (13)
  1. LETAIRIS [Suspect]
     Indication: PULMONARY ARTERIAL HYPERTENSION
     Route: 048
     Dates: start: 20090701
  2. WARFARIN SODIUM [Concomitant]
  3. LASIX [Concomitant]
  4. LISINOPRIL [Concomitant]
  5. NITROGLYCERIN [Concomitant]
  6. XOPENEX HFA [Concomitant]
  7. CRESTOR [Concomitant]
  8. ALLOPURINOL [Concomitant]
  9. PROTONIX [Concomitant]
  10. ZOLOFT [Concomitant]
  11. IMDUR [Concomitant]
  12. QVAR 40 [Concomitant]
  13. LEVEMIR [Concomitant]

REACTIONS (1)
  - HAEMORRHAGE [None]
